FAERS Safety Report 23098054 (Version 1)
Quarter: 2023Q4

REPORT INFORMATION
  Report Type: Spontaneous
  Country: US (occurrence: None)
  Receive Date: 20231020
  Receipt Date: 20231020
  Transmission Date: 20240110
  Serious: Yes (Death)
  Sender: FDA-Public Use
  Company Number: None

PATIENT
  Sex: Male

DRUGS (1)
  1. BOTOX [Suspect]
     Active Substance: ONABOTULINUMTOXINA
     Indication: Oromandibular dystonia
     Dosage: OTHER STRENGTH : 100 UNIT;?OTHER QUANTITY : 400 UNITS;?
     Route: 030

REACTIONS (1)
  - Death [None]
